FAERS Safety Report 18087519 (Version 1)
Quarter: 2020Q3

REPORT INFORMATION
  Report Type: Spontaneous
  Country: US (occurrence: US)
  Receive Date: 20200729
  Receipt Date: 20200729
  Transmission Date: 20201103
  Serious: Yes (Other)
  Sender: FDA-Public Use
  Company Number: None

PATIENT
  Age: 67 Year
  Sex: Female

DRUGS (1)
  1. ENBREL [Suspect]
     Active Substance: ETANERCEPT
     Indication: RHEUMATOID ARTHRITIS
     Dosage: ?  OTHER DOSE:1  CARTRIDGE; QWK SQ?
     Dates: start: 20180622

REACTIONS (2)
  - Musculoskeletal stiffness [None]
  - Pain in extremity [None]

NARRATIVE: CASE EVENT DATE: 20200728
